FAERS Safety Report 6503169-8 (Version None)
Quarter: 2009Q4

REPORT INFORMATION
  Report Type: 
  Country: None (occurrence: None)
  Receive Date: 20091217
  Receipt Date: 20091211
  Transmission Date: 20100525
  Serious: Yes (Death)
  Sender: FDA-Public Use
  Company Number: FR-SANOFI-AVENTIS-2009SA008035

PATIENT
  Age: 87 Year
  Sex: Female

DRUGS (9)
  1. LASILIX [Suspect]
     Route: 048
     Dates: start: 20090727, end: 20090818
  2. HALDOL [Suspect]
     Indication: ANXIETY
     Route: 048
     Dates: start: 20090707, end: 20090818
  3. INIPOMP [Concomitant]
     Indication: DRUG USE FOR UNKNOWN INDICATION
  4. ZOPICLONE [Concomitant]
     Indication: DRUG USE FOR UNKNOWN INDICATION
  5. PAROXETINE HCL [Concomitant]
     Indication: DRUG USE FOR UNKNOWN INDICATION
  6. DILTIAZEM [Concomitant]
     Indication: DRUG USE FOR UNKNOWN INDICATION
  7. FORMOTEROL W/BUDESONIDE [Concomitant]
     Indication: DRUG USE FOR UNKNOWN INDICATION
  8. CARTROL [Concomitant]
     Indication: DRUG USE FOR UNKNOWN INDICATION
  9. DIFFU K [Concomitant]

REACTIONS (1)
  - STEVENS-JOHNSON SYNDROME [None]
